FAERS Safety Report 4353080-6 (Version None)
Quarter: 2004Q2

REPORT INFORMATION
  Report Type: 
  Country: None (occurrence: None)
  Receive Date: 20040430
  Receipt Date: 20040212
  Transmission Date: 20050107
  Serious: No
  Sender: FDA-Public Use
  Company Number: 204713

PATIENT
  Age: 57 Year
  Sex: Female

DRUGS (12)
  1. XOLAIR [Suspect]
     Indication: BRONCHOPULMONARY ASPERGILLOSIS ALLERGIC
     Dosage: 300 MG, Q2W, SUBCUTANEOUS
     Route: 058
     Dates: start: 20031223, end: 20040203
  2. FOSAMAX [Concomitant]
  3. PRILOSEC [Concomitant]
  4. SPORANOX [Concomitant]
  5. SINGULAIR [Concomitant]
  6. PREDNISONE [Concomitant]
  7. MAXAIR [Concomitant]
  8. BEXTRA [Concomitant]
  9. ATIVAN [Concomitant]
  10. INTAL [Concomitant]
  11. FORADIL [Concomitant]
  12. ULTRAM [Concomitant]

REACTIONS (2)
  - ARTHRALGIA [None]
  - MYALGIA [None]
